FAERS Safety Report 9106395 (Version 2)
Quarter: 2013Q2

REPORT INFORMATION
  Report Type: Spontaneous
  Country: FR (occurrence: FR)
  Receive Date: 20130221
  Receipt Date: 20130506
  Transmission Date: 20140414
  Serious: Yes (Hospitalization)
  Sender: FDA-Public Use
  Company Number: FR-PFIZER INC-2013062312

PATIENT
  Age: 6 Year
  Sex: Female
  Weight: 20 kg

DRUGS (3)
  1. ADVIL [Suspect]
     Indication: INFLUENZA LIKE ILLNESS
     Dosage: UNK
     Route: 048
     Dates: start: 20130117, end: 20130122
  2. VENTOLINE [Concomitant]
  3. FLIXOTIDE [Concomitant]

REACTIONS (2)
  - Haematemesis [Not Recovered/Not Resolved]
  - Pyrexia [Unknown]
